FAERS Safety Report 15707711 (Version 1)
Quarter: 2018Q4

REPORT INFORMATION
  Report Type: Spontaneous
  Country: US (occurrence: US)
  Receive Date: 20181211
  Receipt Date: 20181211
  Transmission Date: 20190205
  Serious: Yes (Other)
  Sender: FDA-Public Use
  Company Number: US-APOTEX-2018AP026402

PATIENT
  Age: 62 Year
  Sex: Male

DRUGS (2)
  1. AMOXICILLIN /CLAVULANATE [Suspect]
     Active Substance: AMOXICILLIN\CLAVULANATE POTASSIUM
     Indication: SINUSITIS
     Dosage: UNK
     Route: 065
  2. AMOXICILLIN /CLAVULANATE [Suspect]
     Active Substance: AMOXICILLIN\CLAVULANATE POTASSIUM
     Dosage: UNK, FULL-DOSE (RECHALLENGED DOSE)
     Route: 048

REACTIONS (3)
  - Flushing [Recovered/Resolved]
  - Anaphylactic reaction [Unknown]
  - Urticaria [Recovered/Resolved]
